FAERS Safety Report 6726405-1 (Version None)
Quarter: 2010Q2

REPORT INFORMATION
  Report Type: 
  Country: None (occurrence: None)
  Receive Date: 20100514
  Receipt Date: 20100506
  Transmission Date: 20101027
  Serious: Yes (Other)
  Sender: FDA-Public Use
  Company Number: B0652870A

PATIENT
  Age: 80 Year
  Sex: Male

DRUGS (8)
  1. AVIDART [Suspect]
     Indication: DRUG USE FOR UNKNOWN INDICATION
     Dates: start: 20100323, end: 20100406
  2. MANIDON RETARD [Suspect]
     Indication: DRUG USE FOR UNKNOWN INDICATION
     Dosage: 240MG PER DAY
     Route: 048
     Dates: start: 20100101
  3. ATORVASTATIN CALCIUM [Concomitant]
     Dosage: 10MG PER DAY
  4. ENALAPRIL MALEATE [Concomitant]
     Dosage: 30MG PER DAY
  5. OMNIC [Concomitant]
     Dosage: .4MG PER DAY
  6. TERTENSIF RETARD [Concomitant]
     Dosage: 1TAB PER DAY
  7. ALLOPURINOL [Concomitant]
     Dosage: 300MG PER DAY
  8. SINTROM [Concomitant]

REACTIONS (5)
  - CARDIAC FAILURE CONGESTIVE [None]
  - COUGH [None]
  - DYSPNOEA [None]
  - OEDEMA PERIPHERAL [None]
  - SPUTUM RETENTION [None]
